FAERS Safety Report 4947245-X (Version None)
Quarter: 2006Q1

REPORT INFORMATION
  Report Type: 
  Country: None (occurrence: None)
  Receive Date: 20060314
  Receipt Date: 20060306
  Transmission Date: 20060701
  Serious: Yes (Other)
  Sender: FDA-Public Use
  Company Number: 222799

PATIENT
  Age: 89 Year
  Sex: Female

DRUGS (1)
  1. RITUXAN [Suspect]
     Indication: LYMPHOMA

REACTIONS (3)
  - MYOCARDIAL OEDEMA [None]
  - OEDEMA PERIPHERAL [None]
  - PAIN [None]
